FAERS Safety Report 16348878 (Version 1)
Quarter: 2019Q2

REPORT INFORMATION
  Report Type: Spontaneous
  Country: ES (occurrence: ES)
  Receive Date: 20190523
  Receipt Date: 20190523
  Transmission Date: 20190711
  Serious: Yes (Other)
  Sender: FDA-Public Use
  Company Number: ES-B.I. PHARMACEUTICALS,INC./RIDGEFIELD-2019-BI-022534

PATIENT
  Age: 73 Year
  Sex: Female

DRUGS (10)
  1. DOCETAXEL. [Concomitant]
     Active Substance: DOCETAXEL
     Indication: EGFR GENE MUTATION
     Route: 065
     Dates: start: 2017, end: 201802
  2. OMEPRAZOLE. [Concomitant]
     Active Substance: OMEPRAZOLE
     Indication: PRODUCT USED FOR UNKNOWN INDICATION
     Route: 065
  3. SERETIDE [Concomitant]
     Active Substance: FLUTICASONE PROPIONATE\SALMETEROL XINAFOATE
     Indication: PRODUCT USED FOR UNKNOWN INDICATION
     Dosage: DOSE :50/500
     Route: 055
  4. VARGATEF [Suspect]
     Active Substance: NINTEDANIB
     Indication: EGFR GENE MUTATION
  5. DOCETAXEL. [Concomitant]
     Active Substance: DOCETAXEL
     Indication: NON-SMALL CELL LUNG CANCER
     Route: 065
     Dates: start: 20170731, end: 2017
  6. VARGATEF [Suspect]
     Active Substance: NINTEDANIB
     Indication: NON-SMALL CELL LUNG CANCER
     Route: 065
     Dates: start: 20170731, end: 201901
  7. VARGATEF [Suspect]
     Active Substance: NINTEDANIB
     Indication: LIVER DISORDER
  8. DOCETAXEL. [Concomitant]
     Active Substance: DOCETAXEL
     Indication: LIVER DISORDER
  9. ALPRAZOLAM. [Concomitant]
     Active Substance: ALPRAZOLAM
     Indication: PRODUCT USED FOR UNKNOWN INDICATION
     Route: 065
  10. CANDESARTAN CILEXETIL-HYDROCHLOROTHIAZIDE [Concomitant]
     Active Substance: CANDESARTAN CILEXETIL\HYDROCHLOROTHIAZIDE
     Indication: PRODUCT USED FOR UNKNOWN INDICATION
     Dosage: DOSE-16/12.5 MILLIGRAM
     Route: 065

REACTIONS (2)
  - Non-small cell lung cancer [Unknown]
  - Mucosal inflammation [Recovered/Resolved]

NARRATIVE: CASE EVENT DATE: 2017
